FAERS Safety Report 4873868-2 (Version None)
Quarter: 2006Q1

REPORT INFORMATION
  Report Type: 
  Country: None (occurrence: None)
  Receive Date: 20060104
  Receipt Date: 20051223
  Transmission Date: 20060701
  Serious: Yes (Other)
  Sender: FDA-Public Use
  Company Number: 006340

PATIENT
  Sex: Female

DRUGS (4)
  1. MEDROXYPROGESTERONE ACETATE [Suspect]
     Dosage: ORAL
     Route: 048
     Dates: start: 19890101, end: 20031201
  2. ESTRACE [Suspect]
     Dosage: ORAL
     Route: 048
     Dates: start: 19890101, end: 20031201
  3. PROVERA [Suspect]
     Dosage: ORAL
     Route: 048
     Dates: start: 19890101, end: 20031201
  4. PREMPRO [Suspect]
     Dosage: ORAL
     Route: 048
     Dates: start: 19890101, end: 20031201

REACTIONS (1)
  - BREAST CANCER FEMALE [None]
